FAERS Safety Report 10277086 (Version 4)
Quarter: 2016Q4

REPORT INFORMATION
  Report Type: Report from Study
  Country: BR (occurrence: BR)
  Receive Date: 20140703
  Receipt Date: 20161208
  Transmission Date: 20170206
  Serious: Yes (Hospitalization, Other)
  Sender: FDA-Public Use
  Company Number: BR-ROCHE-1303864

PATIENT
  Age: 67 Year
  Sex: Female
  Weight: 95 kg

DRUGS (15)
  1. ENDOFOLIN [Concomitant]
     Active Substance: FOLIC ACID
  2. DORFLEX [Concomitant]
     Active Substance: CAFFEINE\DIPYRONE\ORPHENADRINE
  3. TYLENOL [Concomitant]
     Active Substance: ACETAMINOPHEN
     Indication: PAIN
  4. DEPURA [Concomitant]
     Active Substance: CHOLECALCIFEROL
  5. MABTHERA [Suspect]
     Active Substance: RITUXIMAB
     Indication: RHEUMATOID ARTHRITIS
     Dosage: LATEST INFUSION WAS PERFORMED ON 21/NOV/2013.?LATEST INFUSION ON 04/JUN/2015
     Route: 042
     Dates: start: 20130318
  6. ATORVASTATIN [Concomitant]
     Active Substance: ATORVASTATIN
  7. ARADOIS H [Concomitant]
     Active Substance: HYDROCHLOROTHIAZIDE\LOSARTAN POTASSIUM
  8. METHOTREXATE. [Concomitant]
     Active Substance: METHOTREXATE
  9. PROFENID [Concomitant]
     Active Substance: KETOPROFEN
     Indication: INFLAMMATION
  10. PURAN [Concomitant]
     Active Substance: LEVOTHYROXINE SODIUM
     Dosage: 150MCG AND 125MCG
     Route: 065
  11. XARELTO [Concomitant]
     Active Substance: RIVAROXABAN
  12. ASPIRIN. [Concomitant]
     Active Substance: ASPIRIN
  13. ALLOPURINOL. [Concomitant]
     Active Substance: ALLOPURINOL
  14. ACETYLCYSTEINE. [Concomitant]
     Active Substance: ACETYLCYSTEINE
  15. ARTROLIVE [Concomitant]
     Active Substance: CHONDROITIN SULFATE (BOVINE)\GLUCOSAMINE SULFATE

REACTIONS (9)
  - Arthropathy [Not Recovered/Not Resolved]
  - Influenza [Recovering/Resolving]
  - Pelvic deformity [Not Recovered/Not Resolved]
  - Catarrh [Recovering/Resolving]
  - Bursitis [Not Recovered/Not Resolved]
  - Accident [Unknown]
  - Cartilage injury [Not Recovered/Not Resolved]
  - Arthralgia [Not Recovered/Not Resolved]
  - Pain [Not Recovered/Not Resolved]

NARRATIVE: CASE EVENT DATE: 20131104
